FAERS Safety Report 6701900-X (Version None)
Quarter: 2010Q2

REPORT INFORMATION
  Report Type: 
  Country: None (occurrence: None)
  Receive Date: 20100429
  Receipt Date: 20100419
  Transmission Date: 20101027
  Serious: Yes (Other)
  Sender: FDA-Public Use
  Company Number: JP-PFIZER INC-2010052226

PATIENT
  Sex: Female

DRUGS (2)
  1. ZOLOFT [Suspect]
     Dosage: 25 MG, 1X/DAY
     Route: 048
  2. DEPROMEL [Concomitant]
     Dosage: 25 MG, 1X/DAY
     Route: 048

REACTIONS (2)
  - ABDOMINAL DISTENSION [None]
  - ARRHYTHMIA [None]
